FAERS Safety Report 4454384-9 (Version None)
Quarter: 2004Q3

REPORT INFORMATION
  Report Type: 
  Country: None (occurrence: None)
  Receive Date: 20040826
  Receipt Date: 20040528
  Transmission Date: 20050211
  Serious: No
  Sender: FDA-Public Use
  Company Number: WAES 0406USA00036

PATIENT
  Age: 79 Year
  Sex: Female

DRUGS (7)
  1. ZETIA [Suspect]
     Indication: HYPERCHOLESTEROLAEMIA
     Dosage: 10 MG, DAILY; PO
     Route: 048
     Dates: start: 20040517, end: 20040528
  2. NEURONTIN [Concomitant]
  3. PRINZIDE [Concomitant]
  4. TRICOR [Concomitant]
  5. ULTRAM [Concomitant]
  6. VIOXX [Concomitant]
  7. TEMAZEPAM [Concomitant]

REACTIONS (1)
  - URTICARIA [None]
